FAERS Safety Report 8161493-X (Version None)
Quarter: 2012Q1

REPORT INFORMATION
  Report Type: 
  Country: None (occurrence: None)
  Receive Date: 20120224
  Receipt Date: 20120216
  Transmission Date: 20120608
  Serious: Yes (Other)
  Sender: FDA-Public Use
  Company Number: JP-VERTEX PHARMACEUTICALS INC.-AE-2012-002370

PATIENT
  Age: 63 Year
  Sex: Male

DRUGS (7)
  1. FERROUS CITRATE [Concomitant]
     Route: 048
  2. URSO 250 [Concomitant]
     Route: 048
  3. TELAVIC (TELAPREVIR) [Suspect]
     Indication: HEPATITIS C
     Route: 048
     Dates: start: 20120210, end: 20120212
  4. REBETOL [Concomitant]
     Indication: HEPATITIS C
     Route: 048
     Dates: start: 20120210, end: 20120213
  5. TELAVIC (TELAPREVIR) [Suspect]
     Route: 048
     Dates: start: 20120213, end: 20120213
  6. LEBARAMINE [Concomitant]
     Route: 048
  7. PEGINTFERON ALFA-2B [Concomitant]
     Indication: HEPATITIS C
     Route: 058
     Dates: start: 20120210

REACTIONS (7)
  - RENAL FAILURE [None]
  - MALAISE [None]
  - NAUSEA [None]
  - DEHYDRATION [None]
  - RASH [None]
  - PYREXIA [None]
  - DECREASED APPETITE [None]
